FAERS Safety Report 7343312-4 (Version None)
Quarter: 2011Q1

REPORT INFORMATION
  Report Type: 
  Country: None (occurrence: None)
  Receive Date: 20110308
  Receipt Date: 20110308
  Transmission Date: 20110831
  Serious: Yes (Life-Threatening, Other)
  Sender: FDA-Public Use
  Company Number: None

PATIENT
  Sex: Male
  Weight: 77.1115 kg

DRUGS (3)
  1. HALFLYTELY [Suspect]
     Indication: COLONOSCOPY
     Dosage: 1 CONTAINER PO
     Route: 048
     Dates: start: 20110221, end: 20110221
  2. HALFLYTELY [Suspect]
     Indication: BOWEL PREPARATION
     Dosage: 1 CONTAINER PO
     Route: 048
     Dates: start: 20110221, end: 20110221
  3. BISACODYL [Suspect]
     Dates: start: 20110221, end: 20110221

REACTIONS (1)
  - DRUG DISPENSING ERROR [None]
